FAERS Safety Report 17121419 (Version 6)
Quarter: 2025Q4

REPORT INFORMATION
  Report Type: Spontaneous
  Country: EU (occurrence: EU)
  Receive Date: 20191206
  Receipt Date: 20251015
  Transmission Date: 20260118
  Serious: Yes (Hospitalization)
  Sender: MYLAN
  Company Number: None

PATIENT
  Age: 54 Year
  Sex: Male
  Weight: 87.5 kg

DRUGS (136)
  1. TRAMADOL [Suspect]
     Active Substance: TRAMADOL
     Indication: Pain
     Dosage: 50 MG,PRN(NUMBER OF INTERVALS IN A DAY1)
     Route: 048
     Dates: start: 20190520, end: 20190602
  2. TRAMADOL [Suspect]
     Active Substance: TRAMADOL
     Dosage: 50 MG,PRN(NUMBER OF INTERVALS IN A DAY1)
     Dates: start: 20190520, end: 20190602
  3. TRAMADOL [Suspect]
     Active Substance: TRAMADOL
     Dosage: 50 MG,PRN(NUMBER OF INTERVALS IN A DAY1)
     Dates: start: 20190520, end: 20190602
  4. TRAMADOL [Suspect]
     Active Substance: TRAMADOL
     Dosage: 50 MG,PRN(NUMBER OF INTERVALS IN A DAY1)
     Route: 048
     Dates: start: 20190520, end: 20190602
  5. TRAMADOL [Suspect]
     Active Substance: TRAMADOL
     Dosage: UNK
     Route: 048
     Dates: start: 20190520, end: 20190602
  6. TRAMADOL [Suspect]
     Active Substance: TRAMADOL
     Dosage: UNK
     Dates: start: 20190520, end: 20190602
  7. TRAMADOL [Suspect]
     Active Substance: TRAMADOL
     Dosage: UNK
     Dates: start: 20190520, end: 20190602
  8. TRAMADOL [Suspect]
     Active Substance: TRAMADOL
     Dosage: UNK
     Route: 048
     Dates: start: 20190520, end: 20190602
  9. PIPERACILLIN SODIUM\TAZOBACTAM SODIUM [Suspect]
     Active Substance: PIPERACILLIN SODIUM\TAZOBACTAM SODIUM
     Indication: Sepsis
     Dosage: 12 GRAM, QD
     Dates: start: 20190406, end: 20190607
  10. PIPERACILLIN SODIUM\TAZOBACTAM SODIUM [Suspect]
     Active Substance: PIPERACILLIN SODIUM\TAZOBACTAM SODIUM
     Dosage: 12 GRAM, QD
     Dates: start: 20190406, end: 20190607
  11. PIPERACILLIN SODIUM\TAZOBACTAM SODIUM [Suspect]
     Active Substance: PIPERACILLIN SODIUM\TAZOBACTAM SODIUM
     Dosage: 12 GRAM, QD
     Route: 042
     Dates: start: 20190406, end: 20190607
  12. PIPERACILLIN SODIUM\TAZOBACTAM SODIUM [Suspect]
     Active Substance: PIPERACILLIN SODIUM\TAZOBACTAM SODIUM
     Dosage: 12 GRAM, QD
     Route: 042
     Dates: start: 20190406, end: 20190607
  13. PIPERACILLIN SODIUM\TAZOBACTAM SODIUM [Suspect]
     Active Substance: PIPERACILLIN SODIUM\TAZOBACTAM SODIUM
     Dosage: 12 GRAM, QD (1-1-1)
     Dates: start: 20190604, end: 20190607
  14. PIPERACILLIN SODIUM\TAZOBACTAM SODIUM [Suspect]
     Active Substance: PIPERACILLIN SODIUM\TAZOBACTAM SODIUM
     Dosage: 12 GRAM, QD (1-1-1)
     Dates: start: 20190604, end: 20190607
  15. PIPERACILLIN SODIUM\TAZOBACTAM SODIUM [Suspect]
     Active Substance: PIPERACILLIN SODIUM\TAZOBACTAM SODIUM
     Dosage: 12 GRAM, QD (1-1-1)
     Route: 042
     Dates: start: 20190604, end: 20190607
  16. PIPERACILLIN SODIUM\TAZOBACTAM SODIUM [Suspect]
     Active Substance: PIPERACILLIN SODIUM\TAZOBACTAM SODIUM
     Dosage: 12 GRAM, QD (1-1-1)
     Route: 042
     Dates: start: 20190604, end: 20190607
  17. PIPERACILLIN SODIUM\TAZOBACTAM SODIUM [Suspect]
     Active Substance: PIPERACILLIN SODIUM\TAZOBACTAM SODIUM
     Dosage: 12 GRAM, QD
     Dates: start: 20190614, end: 20190624
  18. PIPERACILLIN SODIUM\TAZOBACTAM SODIUM [Suspect]
     Active Substance: PIPERACILLIN SODIUM\TAZOBACTAM SODIUM
     Dosage: 12 GRAM, QD
     Route: 042
     Dates: start: 20190614, end: 20190624
  19. PIPERACILLIN SODIUM\TAZOBACTAM SODIUM [Suspect]
     Active Substance: PIPERACILLIN SODIUM\TAZOBACTAM SODIUM
     Dosage: 12 GRAM, QD
     Dates: start: 20190614, end: 20190624
  20. PIPERACILLIN SODIUM\TAZOBACTAM SODIUM [Suspect]
     Active Substance: PIPERACILLIN SODIUM\TAZOBACTAM SODIUM
     Dosage: 12 GRAM, QD
     Route: 042
     Dates: start: 20190614, end: 20190624
  21. PROPOFOL [Suspect]
     Active Substance: PROPOFOL
     Indication: Anaesthesia
     Dosage: 1088 MILLIGRAM, QD
     Dates: start: 20190515, end: 20190515
  22. PROPOFOL [Suspect]
     Active Substance: PROPOFOL
     Indication: Pain
     Dosage: 1088 MILLIGRAM, QD
     Route: 042
     Dates: start: 20190515, end: 20190515
  23. PROPOFOL [Suspect]
     Active Substance: PROPOFOL
     Dosage: 1088 MILLIGRAM, QD
     Route: 042
     Dates: start: 20190515, end: 20190515
  24. PROPOFOL [Suspect]
     Active Substance: PROPOFOL
     Dosage: 1088 MILLIGRAM, QD
     Dates: start: 20190515, end: 20190515
  25. PANTOPRAZOLE SODIUM [Suspect]
     Active Substance: PANTOPRAZOLE SODIUM
     Indication: Prophylaxis against gastrointestinal ulcer
     Dosage: 20 MG IN THE MORNING
     Dates: start: 20190505
  26. PANTOPRAZOLE SODIUM [Suspect]
     Active Substance: PANTOPRAZOLE SODIUM
     Dosage: 20 MG IN THE MORNING
     Route: 048
     Dates: start: 20190505
  27. PANTOPRAZOLE SODIUM [Suspect]
     Active Substance: PANTOPRAZOLE SODIUM
     Dosage: 20 MG IN THE MORNING
     Route: 048
     Dates: start: 20190505
  28. PANTOPRAZOLE SODIUM [Suspect]
     Active Substance: PANTOPRAZOLE SODIUM
     Dosage: 20 MG IN THE MORNING
     Dates: start: 20190505
  29. NEFOPAM HYDROCHLORIDE [Suspect]
     Active Substance: NEFOPAM HYDROCHLORIDE
     Indication: Pain
     Dosage: 20 MILLIGRAM
     Route: 042
  30. NEFOPAM HYDROCHLORIDE [Suspect]
     Active Substance: NEFOPAM HYDROCHLORIDE
     Dosage: 20 MILLIGRAM
  31. NEFOPAM HYDROCHLORIDE [Suspect]
     Active Substance: NEFOPAM HYDROCHLORIDE
     Dosage: 20 MILLIGRAM
  32. NEFOPAM HYDROCHLORIDE [Suspect]
     Active Substance: NEFOPAM HYDROCHLORIDE
     Dosage: 20 MILLIGRAM
     Route: 042
  33. NEFOPAM HYDROCHLORIDE [Suspect]
     Active Substance: NEFOPAM HYDROCHLORIDE
     Dosage: 20 MILLIGRAM
     Route: 042
  34. NEFOPAM HYDROCHLORIDE [Suspect]
     Active Substance: NEFOPAM HYDROCHLORIDE
     Dosage: 20 MILLIGRAM
  35. NEFOPAM HYDROCHLORIDE [Suspect]
     Active Substance: NEFOPAM HYDROCHLORIDE
     Dosage: 20 MILLIGRAM
  36. NEFOPAM HYDROCHLORIDE [Suspect]
     Active Substance: NEFOPAM HYDROCHLORIDE
     Dosage: 20 MILLIGRAM
     Route: 042
  37. AMIKACIN [Suspect]
     Active Substance: AMIKACIN
     Indication: Sepsis
     Dosage: 1500 MILLIGRAM, QD
     Dates: start: 20190604, end: 20190604
  38. AMIKACIN [Suspect]
     Active Substance: AMIKACIN
     Dosage: 1500 MILLIGRAM, QD
     Route: 042
     Dates: start: 20190604, end: 20190604
  39. AMIKACIN [Suspect]
     Active Substance: AMIKACIN
     Dosage: 1500 MILLIGRAM, QD
     Route: 042
     Dates: start: 20190604, end: 20190604
  40. AMIKACIN [Suspect]
     Active Substance: AMIKACIN
     Dosage: 1500 MILLIGRAM, QD
     Dates: start: 20190604, end: 20190604
  41. CEFTRIAXONE SODIUM [Suspect]
     Active Substance: CEFTRIAXONE SODIUM
     Indication: Sepsis
     Dosage: 1 GRAM, QD
     Dates: start: 20190607, end: 20190613
  42. CEFTRIAXONE SODIUM [Suspect]
     Active Substance: CEFTRIAXONE SODIUM
     Dosage: 1 GRAM, QD
     Route: 042
     Dates: start: 20190607, end: 20190613
  43. CEFTRIAXONE SODIUM [Suspect]
     Active Substance: CEFTRIAXONE SODIUM
     Dosage: 1 GRAM, QD
     Route: 042
     Dates: start: 20190607, end: 20190613
  44. CEFTRIAXONE SODIUM [Suspect]
     Active Substance: CEFTRIAXONE SODIUM
     Dosage: 1 GRAM, QD
     Dates: start: 20190607, end: 20190613
  45. METHYLPREDNISOLONE [Suspect]
     Active Substance: METHYLPREDNISOLONE
     Indication: Allergy prophylaxis
     Dosage: 60 MILLIGRAM, QD
     Dates: start: 20190606, end: 20190606
  46. METHYLPREDNISOLONE [Suspect]
     Active Substance: METHYLPREDNISOLONE
     Dosage: 60 MILLIGRAM, QD
     Route: 042
     Dates: start: 20190606, end: 20190606
  47. METHYLPREDNISOLONE [Suspect]
     Active Substance: METHYLPREDNISOLONE
     Dosage: 60 MILLIGRAM, QD
     Route: 042
     Dates: start: 20190606, end: 20190606
  48. METHYLPREDNISOLONE [Suspect]
     Active Substance: METHYLPREDNISOLONE
     Dosage: 60 MILLIGRAM, QD
     Dates: start: 20190606, end: 20190606
  49. REMIFENTANIL [Suspect]
     Active Substance: REMIFENTANIL
     Indication: Anaesthesia
     Dosage: 796 MICROGRAM, QD
     Dates: start: 20190515, end: 20190515
  50. REMIFENTANIL [Suspect]
     Active Substance: REMIFENTANIL
     Dosage: 796 MICROGRAM, QD
     Route: 042
     Dates: start: 20190515, end: 20190515
  51. REMIFENTANIL [Suspect]
     Active Substance: REMIFENTANIL
     Dosage: 796 MICROGRAM, QD
     Route: 042
     Dates: start: 20190515, end: 20190515
  52. REMIFENTANIL [Suspect]
     Active Substance: REMIFENTANIL
     Dosage: 796 MICROGRAM, QD
     Dates: start: 20190515, end: 20190515
  53. VANCOMYCIN [Suspect]
     Active Substance: VANCOMYCIN
     Indication: Sepsis
     Dosage: 3080 MILLIGRAM, QD
     Dates: start: 20190605, end: 20190628
  54. VANCOMYCIN [Suspect]
     Active Substance: VANCOMYCIN
     Indication: Pain
     Dosage: 3080 MILLIGRAM, QD
     Route: 042
     Dates: start: 20190605, end: 20190628
  55. VANCOMYCIN [Suspect]
     Active Substance: VANCOMYCIN
     Dosage: 3080 MILLIGRAM, QD
     Route: 042
     Dates: start: 20190605, end: 20190628
  56. VANCOMYCIN [Suspect]
     Active Substance: VANCOMYCIN
     Dosage: 3080 MILLIGRAM, QD
     Dates: start: 20190605, end: 20190628
  57. MAGNESIUM [Suspect]
     Active Substance: MAGNESIUM
     Indication: Magnesium deficiency
     Dosage: 1 DOSAGE FORM, QD
  58. MAGNESIUM [Suspect]
     Active Substance: MAGNESIUM
     Dosage: 1 DOSAGE FORM, QD
     Route: 065
  59. MAGNESIUM [Suspect]
     Active Substance: MAGNESIUM
     Dosage: 1 DOSAGE FORM, QD
     Route: 065
  60. MAGNESIUM [Suspect]
     Active Substance: MAGNESIUM
     Dosage: 1 DOSAGE FORM, QD
  61. CETIRIZINE [Suspect]
     Active Substance: CETIRIZINE HYDROCHLORIDE
     Indication: Allergy prophylaxis
     Dosage: 10 MILLIGRAM, QD (0-0-1), 1 DOSAGE FORM
     Dates: start: 20190606
  62. CETIRIZINE [Suspect]
     Active Substance: CETIRIZINE HYDROCHLORIDE
     Dosage: 10 MILLIGRAM, QD (0-0-1), 1 DOSAGE FORM
     Dates: start: 20190606
  63. CETIRIZINE [Suspect]
     Active Substance: CETIRIZINE HYDROCHLORIDE
     Dosage: 10 MILLIGRAM, QD (0-0-1), 1 DOSAGE FORM
     Route: 048
     Dates: start: 20190606
  64. CETIRIZINE [Suspect]
     Active Substance: CETIRIZINE HYDROCHLORIDE
     Dosage: 10 MILLIGRAM, QD (0-0-1), 1 DOSAGE FORM
     Route: 048
     Dates: start: 20190606
  65. CETIRIZINE [Suspect]
     Active Substance: CETIRIZINE HYDROCHLORIDE
     Dosage: 10 MILLIGRAM, QD (0-0-1)
  66. CETIRIZINE [Suspect]
     Active Substance: CETIRIZINE HYDROCHLORIDE
     Dosage: 10 MILLIGRAM, QD (0-0-1)
  67. CETIRIZINE [Suspect]
     Active Substance: CETIRIZINE HYDROCHLORIDE
     Dosage: 10 MILLIGRAM, QD (0-0-1)
     Route: 048
  68. CETIRIZINE [Suspect]
     Active Substance: CETIRIZINE HYDROCHLORIDE
     Dosage: 10 MILLIGRAM, QD (0-0-1)
     Route: 048
  69. INNOHEP [Suspect]
     Active Substance: TINZAPARIN SODIUM
     Indication: Thrombosis
     Dosage: 17000 INTERNATIONAL UNIT, QD
     Dates: start: 20190505, end: 20190520
  70. INNOHEP [Suspect]
     Active Substance: TINZAPARIN SODIUM
     Dosage: 17000 INTERNATIONAL UNIT, QD
     Route: 058
     Dates: start: 20190505, end: 20190520
  71. INNOHEP [Suspect]
     Active Substance: TINZAPARIN SODIUM
     Dosage: 17000 INTERNATIONAL UNIT, QD
     Route: 058
     Dates: start: 20190505, end: 20190520
  72. INNOHEP [Suspect]
     Active Substance: TINZAPARIN SODIUM
     Dosage: 17000 INTERNATIONAL UNIT, QD
     Dates: start: 20190505, end: 20190520
  73. OCTREOTIDE [Suspect]
     Active Substance: OCTREOTIDE
     Indication: Gastrointestinal haemorrhage
     Dosage: 600 MICROGRAM, QD
     Route: 042
     Dates: start: 20190605, end: 20190607
  74. OCTREOTIDE [Suspect]
     Active Substance: OCTREOTIDE
     Dosage: 600 MICROGRAM, QD
     Dates: start: 20190605, end: 20190607
  75. OCTREOTIDE [Suspect]
     Active Substance: OCTREOTIDE
     Dosage: 600 MICROGRAM, QD
     Dates: start: 20190605, end: 20190607
  76. OCTREOTIDE [Suspect]
     Active Substance: OCTREOTIDE
     Dosage: 600 MICROGRAM, QD
     Route: 042
     Dates: start: 20190605, end: 20190607
  77. OCTREOTIDE [Suspect]
     Active Substance: OCTREOTIDE
     Dosage: 1 DOSAGE FORM, QD
     Route: 042
     Dates: start: 20190605, end: 20190607
  78. OCTREOTIDE [Suspect]
     Active Substance: OCTREOTIDE
     Dosage: 1 DOSAGE FORM, QD
     Dates: start: 20190605, end: 20190607
  79. OCTREOTIDE [Suspect]
     Active Substance: OCTREOTIDE
     Dosage: 1 DOSAGE FORM, QD
     Dates: start: 20190605, end: 20190607
  80. OCTREOTIDE [Suspect]
     Active Substance: OCTREOTIDE
     Dosage: 1 DOSAGE FORM, QD
     Route: 042
     Dates: start: 20190605, end: 20190607
  81. MAGNESIUM [Suspect]
     Active Substance: MAGNESIUM
     Indication: Magnesium deficiency
     Dosage: 2 DOSAGE FORM, QD (2-0-0)
     Dates: start: 20190618, end: 20190705
  82. MAGNESIUM [Suspect]
     Active Substance: MAGNESIUM
     Dosage: 2 DOSAGE FORM, QD (2-0-0)
     Route: 048
     Dates: start: 20190618, end: 20190705
  83. MAGNESIUM [Suspect]
     Active Substance: MAGNESIUM
     Dosage: 2 DOSAGE FORM, QD (2-0-0)
     Route: 048
     Dates: start: 20190618, end: 20190705
  84. MAGNESIUM [Suspect]
     Active Substance: MAGNESIUM
     Dosage: 2 DOSAGE FORM, QD (2-0-0)
     Dates: start: 20190618, end: 20190705
  85. MORPHINE SULFATE [Suspect]
     Active Substance: MORPHINE SULFATE
     Indication: Pain
     Dosage: 15 MILLIGRAM, QD
     Dates: start: 20190629, end: 20190705
  86. MORPHINE SULFATE [Suspect]
     Active Substance: MORPHINE SULFATE
     Dosage: 15 MILLIGRAM, QD
     Route: 048
     Dates: start: 20190629, end: 20190705
  87. MORPHINE SULFATE [Suspect]
     Active Substance: MORPHINE SULFATE
     Dosage: 15 MILLIGRAM, QD
     Route: 048
     Dates: start: 20190629, end: 20190705
  88. MORPHINE SULFATE [Suspect]
     Active Substance: MORPHINE SULFATE
     Dosage: 15 MILLIGRAM, QD
     Dates: start: 20190629, end: 20190705
  89. TRAMADOL HYDROCHLORIDE [Suspect]
     Active Substance: TRAMADOL HYDROCHLORIDE
     Indication: Pain
     Dosage: 200 MILLIGRAM, QD
     Dates: start: 20190515, end: 20190515
  90. TRAMADOL HYDROCHLORIDE [Suspect]
     Active Substance: TRAMADOL HYDROCHLORIDE
     Dosage: 200 MILLIGRAM, QD
     Route: 042
     Dates: start: 20190515, end: 20190515
  91. TRAMADOL HYDROCHLORIDE [Suspect]
     Active Substance: TRAMADOL HYDROCHLORIDE
     Dosage: 200 MILLIGRAM, QD
     Route: 042
     Dates: start: 20190515, end: 20190515
  92. TRAMADOL HYDROCHLORIDE [Suspect]
     Active Substance: TRAMADOL HYDROCHLORIDE
     Dosage: 200 MILLIGRAM, QD
     Dates: start: 20190515, end: 20190515
  93. LOVENOX [Suspect]
     Active Substance: ENOXAPARIN SODIUM
     Indication: Thrombosis prophylaxis
     Dosage: 4000 INTERNATIONAL UNIT, QD
     Route: 058
     Dates: start: 20190614
  94. LOVENOX [Suspect]
     Active Substance: ENOXAPARIN SODIUM
     Dosage: 4000 INTERNATIONAL UNIT, QD
     Dates: start: 20190614
  95. LOVENOX [Suspect]
     Active Substance: ENOXAPARIN SODIUM
     Dosage: 4000 INTERNATIONAL UNIT, QD
     Dates: start: 20190614
  96. LOVENOX [Suspect]
     Active Substance: ENOXAPARIN SODIUM
     Dosage: 4000 INTERNATIONAL UNIT, QD
     Route: 058
     Dates: start: 20190614
  97. LOVENOX [Suspect]
     Active Substance: ENOXAPARIN SODIUM
     Dosage: 4000 INTERNATIONAL UNIT, QD
     Route: 058
  98. LOVENOX [Suspect]
     Active Substance: ENOXAPARIN SODIUM
     Dosage: 4000 INTERNATIONAL UNIT, QD
  99. LOVENOX [Suspect]
     Active Substance: ENOXAPARIN SODIUM
     Dosage: 4000 INTERNATIONAL UNIT, QD
  100. LOVENOX [Suspect]
     Active Substance: ENOXAPARIN SODIUM
     Dosage: 4000 INTERNATIONAL UNIT, QD
     Route: 058
  101. COLCHICINE [Suspect]
     Active Substance: COLCHICINE
     Indication: Gout
     Dosage: 2 MILLIGRAM, QD
     Dates: start: 20190615, end: 20190617
  102. COLCHICINE [Suspect]
     Active Substance: COLCHICINE
     Dosage: 2 MILLIGRAM, QD
     Route: 048
     Dates: start: 20190615, end: 20190617
  103. COLCHICINE [Suspect]
     Active Substance: COLCHICINE
     Dosage: 2 MILLIGRAM, QD
     Route: 048
     Dates: start: 20190615, end: 20190617
  104. COLCHICINE [Suspect]
     Active Substance: COLCHICINE
     Dosage: 2 MILLIGRAM, QD
     Dates: start: 20190615, end: 20190617
  105. VITAMIN K [Suspect]
     Active Substance: PHYTONADIONE
     Indication: Prothrombin time ratio decreased
     Dosage: 20 MILLIGRAM, QD
     Dates: start: 20190604, end: 20190609
  106. VITAMIN K [Suspect]
     Active Substance: PHYTONADIONE
     Dosage: 20 MILLIGRAM, QD
     Route: 042
     Dates: start: 20190604, end: 20190609
  107. VITAMIN K [Suspect]
     Active Substance: PHYTONADIONE
     Dosage: 20 MILLIGRAM, QD
     Route: 042
     Dates: start: 20190604, end: 20190609
  108. VITAMIN K [Suspect]
     Active Substance: PHYTONADIONE
     Dosage: 20 MILLIGRAM, QD
     Dates: start: 20190604, end: 20190609
  109. POLARAMINE [Suspect]
     Active Substance: DEXCHLORPHENIRAMINE MALEATE
     Indication: Allergy prophylaxis
     Dosage: 5 MILLIGRAM, QD
     Dates: start: 20190606, end: 20190606
  110. POLARAMINE [Suspect]
     Active Substance: DEXCHLORPHENIRAMINE MALEATE
     Dosage: 5 MILLIGRAM, QD
     Route: 042
     Dates: start: 20190606, end: 20190606
  111. POLARAMINE [Suspect]
     Active Substance: DEXCHLORPHENIRAMINE MALEATE
     Dosage: 5 MILLIGRAM, QD
     Route: 042
     Dates: start: 20190606, end: 20190606
  112. POLARAMINE [Suspect]
     Active Substance: DEXCHLORPHENIRAMINE MALEATE
     Dosage: 5 MILLIGRAM, QD
     Dates: start: 20190606, end: 20190606
  113. TINZAPARIN SODIUM [Suspect]
     Active Substance: TINZAPARIN SODIUM
     Indication: Thrombosis
     Dosage: 17000 INTERNATIONAL UNIT, QD
     Dates: start: 20190505, end: 20190520
  114. TINZAPARIN SODIUM [Suspect]
     Active Substance: TINZAPARIN SODIUM
     Dosage: 17000 INTERNATIONAL UNIT, QD
     Route: 058
     Dates: start: 20190505, end: 20190520
  115. TINZAPARIN SODIUM [Suspect]
     Active Substance: TINZAPARIN SODIUM
     Dosage: 17000 INTERNATIONAL UNIT, QD
     Route: 058
     Dates: start: 20190505, end: 20190520
  116. TINZAPARIN SODIUM [Suspect]
     Active Substance: TINZAPARIN SODIUM
     Dosage: 17000 INTERNATIONAL UNIT, QD
     Dates: start: 20190505, end: 20190520
  117. DAPTOMYCIN [Suspect]
     Active Substance: DAPTOMYCIN
     Indication: Septic shock
     Dosage: 850 MILLIGRAM, QD
     Dates: start: 20190701, end: 20190704
  118. DAPTOMYCIN [Suspect]
     Active Substance: DAPTOMYCIN
     Dosage: 850 MILLIGRAM, QD
     Route: 042
     Dates: start: 20190701, end: 20190704
  119. DAPTOMYCIN [Suspect]
     Active Substance: DAPTOMYCIN
     Dosage: 850 MILLIGRAM, QD
     Route: 042
     Dates: start: 20190701, end: 20190704
  120. DAPTOMYCIN [Suspect]
     Active Substance: DAPTOMYCIN
     Dosage: 850 MILLIGRAM, QD
     Dates: start: 20190701, end: 20190704
  121. PHYTONADIONE [Suspect]
     Active Substance: PHYTONADIONE
     Indication: Prothrombin time ratio decreased
     Dosage: 20 MILLIGRAM, QD
     Dates: start: 20190604, end: 20190609
  122. PHYTONADIONE [Suspect]
     Active Substance: PHYTONADIONE
     Dosage: 20 MILLIGRAM, QD
     Route: 042
     Dates: start: 20190604, end: 20190609
  123. PHYTONADIONE [Suspect]
     Active Substance: PHYTONADIONE
     Dosage: 20 MILLIGRAM, QD
     Route: 042
     Dates: start: 20190604, end: 20190609
  124. PHYTONADIONE [Suspect]
     Active Substance: PHYTONADIONE
     Dosage: 20 MILLIGRAM, QD
     Dates: start: 20190604, end: 20190609
  125. DOLIPRANE [Concomitant]
     Active Substance: ACETAMINOPHEN
     Indication: Pain
     Dosage: 1 GRAM, UNK
     Route: 048
  126. DOLIPRANE [Concomitant]
     Active Substance: ACETAMINOPHEN
     Dosage: 1 GRAM, UNK
  127. DOLIPRANE [Concomitant]
     Active Substance: ACETAMINOPHEN
     Dosage: 1 GRAM, UNK
  128. DOLIPRANE [Concomitant]
     Active Substance: ACETAMINOPHEN
     Dosage: 1 GRAM, UNK
     Route: 048
  129. DOLIPRANE [Concomitant]
     Active Substance: ACETAMINOPHEN
     Dosage: UNK
     Route: 048
  130. DOLIPRANE [Concomitant]
     Active Substance: ACETAMINOPHEN
     Dosage: UNK
  131. DOLIPRANE [Concomitant]
     Active Substance: ACETAMINOPHEN
     Dosage: UNK
  132. DOLIPRANE [Concomitant]
     Active Substance: ACETAMINOPHEN
     Dosage: UNK
     Route: 048
  133. KARDEGIC [Concomitant]
     Active Substance: ASPIRIN DL-LYSINE
     Indication: Ischaemic cardiomyopathy
     Dosage: 0-1-0
  134. KARDEGIC [Concomitant]
     Active Substance: ASPIRIN DL-LYSINE
     Dosage: 0-1-0
     Route: 048
  135. KARDEGIC [Concomitant]
     Active Substance: ASPIRIN DL-LYSINE
     Dosage: 0-1-0
     Route: 048
  136. KARDEGIC [Concomitant]
     Active Substance: ASPIRIN DL-LYSINE
     Dosage: 0-1-0

REACTIONS (1)
  - Drug reaction with eosinophilia and systemic symptoms [Not Recovered/Not Resolved]

NARRATIVE: CASE EVENT DATE: 20190701
